FAERS Safety Report 6435814-X (Version None)
Quarter: 2009Q4

REPORT INFORMATION
  Report Type: 
  Country: None (occurrence: None)
  Receive Date: 20091111
  Receipt Date: 20091102
  Transmission Date: 20100525
  Serious: Yes (Hospitalization)
  Sender: FDA-Public Use
  Company Number: NZ-ASTRAZENECA-2009SE23697

PATIENT
  Age: 60 Year
  Sex: Female

DRUGS (3)
  1. OMEPRAZOLE [Suspect]
     Route: 048
     Dates: start: 20031101, end: 20040121
  2. CILAZAPRIL [Concomitant]
     Route: 048
     Dates: start: 20031001
  3. INSULIN NEUTRAL/ ISOPHANE [Concomitant]
     Dosage: 34 UT DAILY
     Route: 058
     Dates: start: 20031001

REACTIONS (5)
  - ABDOMINAL PAIN [None]
  - HYPONATRAEMIA [None]
  - PYREXIA [None]
  - VOMITING [None]
  - WEIGHT DECREASED [None]
